FAERS Safety Report 18244392 (Version 2)
Quarter: 2020Q3

REPORT INFORMATION
  Report Type: Spontaneous
  Country: JP (occurrence: JP)
  Receive Date: 20200908
  Receipt Date: 20200930
  Transmission Date: 20201103
  Serious: Yes (Other)
  Sender: FDA-Public Use
  Company Number: JP-JNJFOC-20200824273

PATIENT
  Age: 47 Year
  Sex: Male

DRUGS (6)
  1. METHOTREXATE. [Suspect]
     Active Substance: METHOTREXATE
     Dosage: 6 DOSAGE FORM, 1/WEEK
     Route: 048
     Dates: start: 20171214, end: 20180305
  2. REMICADE [Suspect]
     Active Substance: INFLIXIMAB
     Dosage: 104 MILLIGRAM, QD
     Route: 041
     Dates: start: 20200330, end: 20200330
  3. REMICADE [Suspect]
     Active Substance: INFLIXIMAB
     Indication: RHEUMATOID ARTHRITIS
     Dosage: 200 MILLIGRAM, QD
     Route: 042
     Dates: start: 20181112, end: 20200127
  4. RHEUMATREX [Suspect]
     Active Substance: METHOTREXATE SODIUM
     Indication: RHEUMATOID ARTHRITIS
     Dosage: 8 MILLIGRAM, 1/WEEK
     Route: 048
     Dates: start: 20180306, end: 20180328
  5. RHEUMATREX [Suspect]
     Active Substance: METHOTREXATE SODIUM
     Dosage: 10 MILLIGRAM, 1/WEEK
     Route: 048
     Dates: start: 20180329
  6. ISOTONIC SODIUM CHLORIDE SOLUTION [Concomitant]
     Active Substance: SODIUM CHLORIDE
     Dosage: 250 MILLILITER, QD
     Route: 041
     Dates: start: 20200330

REACTIONS (1)
  - Shock symptom [Recovered/Resolved]

NARRATIVE: CASE EVENT DATE: 20200330
